FAERS Safety Report 5781138-3 (Version None)
Quarter: 2008Q2

REPORT INFORMATION
  Report Type: 
  Country: None (occurrence: None)
  Receive Date: 20080620
  Receipt Date: 20080611
  Transmission Date: 20081010
  Serious: Yes (Other)
  Sender: FDA-Public Use
  Company Number: US-PFIZER INC-2008050800

PATIENT
  Sex: Male
  Weight: 90.7 kg

DRUGS (7)
  1. LIPITOR [Suspect]
     Indication: BLOOD CHOLESTEROL INCREASED
     Route: 048
  2. HYZAAR [Concomitant]
  3. CARDIZEM [Concomitant]
  4. PROSCAR [Concomitant]
  5. NEXIUM [Concomitant]
  6. ASTHALIN [Concomitant]
  7. ZYRTEC [Concomitant]

REACTIONS (1)
  - BLOOD CREATININE ABNORMAL [None]
